FAERS Safety Report 9157771 (Version 1)
Quarter: 2013Q1

REPORT INFORMATION
  Report Type: Spontaneous
  Country: ES (occurrence: None)
  Receive Date: 20130212
  Receipt Date: 20130212
  Transmission Date: 20140127
  Serious: Yes (Other)
  Sender: FDA-Public Use
  Company Number: DSM-2013-00149

PATIENT
  Age: 76 Year
  Sex: Male

DRUGS (6)
  1. BALZAK PLUS [Suspect]
     Indication: HYPERTENSION
     Dosage: 40/10/25 MG, ORAL
     Route: 048
     Dates: start: 201111, end: 20120806
  2. IRBESARTAN [Suspect]
     Indication: HYPERTENSION
     Route: 048
     Dates: start: 20120728, end: 20120730
  3. METRONIDAZOL(METRONIDAZOLE)(METRONIDAZOLE) [Concomitant]
  4. CLEXANE(ENOXAPARIN SODIUM)(ENOXAPARIN SODIUM) [Concomitant]
  5. PANTOPRAZOLE(PANTOPRAZOLE)(PANTOPRAZOLE) [Concomitant]
  6. SINTROM(ACENOCOUMAROL)(ACENOCOUMAROL) [Concomitant]

REACTIONS (2)
  - Renal failure acute [None]
  - Drug interaction [None]
